FAERS Safety Report 20946331 (Version 16)
Quarter: 2024Q4

REPORT INFORMATION
  Report Type: Spontaneous
  Country: US (occurrence: US)
  Receive Date: 20220610
  Receipt Date: 20241202
  Transmission Date: 20250114
  Serious: No
  Sender: PFIZER
  Company Number: US-PFIZER INC-202200819635

PATIENT
  Age: 59 Year
  Sex: Female
  Weight: 126.1 kg

DRUGS (3)
  1. SOMAVERT [Suspect]
     Active Substance: PEGVISOMANT
     Indication: Insulin-like growth factor abnormal
     Dosage: 10 MG, DAILY
     Dates: start: 2023, end: 2024
  2. SOMAVERT [Suspect]
     Active Substance: PEGVISOMANT
     Indication: Acromegaly
     Dosage: 30 MG, DAILY
     Dates: start: 2024, end: 2024
  3. HYDROCORTISONE ACETATE [Concomitant]
     Active Substance: HYDROCORTISONE ACETATE
     Indication: Adrenal disorder
     Dosage: UNK
     Dates: start: 2017

REACTIONS (8)
  - Therapeutic product effect decreased [Unknown]
  - Headache [Not Recovered/Not Resolved]
  - Fatigue [Unknown]
  - Cardiac disorder [Unknown]
  - Change of bowel habit [Unknown]
  - Gastritis [Unknown]
  - Hypersensitivity [Unknown]
  - Product prescribing error [Unknown]

NARRATIVE: CASE EVENT DATE: 20230101
